FAERS Safety Report 7164497-9 (Version None)
Quarter: 2010Q4

REPORT INFORMATION
  Report Type: 
  Country: None (occurrence: None)
  Receive Date: 20101215
  Receipt Date: 20101105
  Transmission Date: 20110411
  Serious: Yes (Death, Other)
  Sender: FDA-Public Use
  Company Number: US-BAXTER-2009BH019935

PATIENT
  Age: 73 Year
  Sex: Female

DRUGS (21)
  1. HEPARIN SODIUM INJECTION [Suspect]
     Indication: HAEMODIALYSIS
     Route: 040
     Dates: start: 20071108, end: 20071120
  2. HEPARIN SODIUM INJECTION [Suspect]
     Route: 040
     Dates: start: 20071126, end: 20071215
  3. HEPARIN SODIUM INJECTION [Suspect]
     Route: 058
     Dates: start: 20071107, end: 20071120
  4. HEPARIN SODIUM INJECTION [Suspect]
     Route: 058
     Dates: start: 20071203, end: 20071217
  5. HEPARIN SODIUM INJECTION [Suspect]
     Route: 042
     Dates: start: 20071107, end: 20071120
  6. HEPARIN SODIUM INJECTION [Suspect]
     Route: 042
     Dates: start: 20071115, end: 20071115
  7. HEPARIN SODIUM INJECTION [Suspect]
     Route: 042
     Dates: start: 20071129, end: 20071217
  8. HEPARIN SODIUM INJECTION [Suspect]
     Route: 042
     Dates: start: 20071117, end: 20071117
  9. HEPARIN SODIUM 5,000 UNITS IN DEXTROSE 5% [Suspect]
     Indication: PRODUCT USED FOR UNKNOWN INDICATION
     Route: 042
     Dates: start: 20071107, end: 20071107
  10. HEPARIN SODIUM [Suspect]
     Indication: PRODUCT USED FOR UNKNOWN INDICATION
     Route: 042
     Dates: start: 20071108, end: 20071111
  11. PLAVIX [Concomitant]
     Indication: PRODUCT USED FOR UNKNOWN INDICATION
     Route: 065
  12. AMLODIPINE [Concomitant]
     Indication: PRODUCT USED FOR UNKNOWN INDICATION
     Route: 065
  13. ATORVASTATIN [Concomitant]
     Indication: PRODUCT USED FOR UNKNOWN INDICATION
     Route: 065
  14. CARVEDILOL [Concomitant]
     Indication: PRODUCT USED FOR UNKNOWN INDICATION
     Route: 065
  15. PIOGLITAZONE [Concomitant]
     Indication: PRODUCT USED FOR UNKNOWN INDICATION
     Route: 065
  16. LANSOPRAZOLE [Concomitant]
     Indication: PRODUCT USED FOR UNKNOWN INDICATION
     Route: 065
  17. ZOSYN [Concomitant]
     Indication: PRODUCT USED FOR UNKNOWN INDICATION
     Route: 042
  18. CLINDAMYCIN [Concomitant]
     Indication: PRODUCT USED FOR UNKNOWN INDICATION
     Route: 042
  19. CEFAZOLIN [Concomitant]
     Indication: PRODUCT USED FOR UNKNOWN INDICATION
     Route: 042
  20. INSULIN ISOPHANE BW [Concomitant]
     Indication: PRODUCT USED FOR UNKNOWN INDICATION
     Route: 058
  21. GLIPIZIDE [Concomitant]
     Indication: PRODUCT USED FOR UNKNOWN INDICATION
     Route: 048

REACTIONS (19)
  - ARTERIOSCLEROSIS [None]
  - ASTHENIA [None]
  - BREAST MASS [None]
  - DEPRESSED LEVEL OF CONSCIOUSNESS [None]
  - DIZZINESS [None]
  - FATIGUE [None]
  - FEMORAL ARTERY OCCLUSION [None]
  - GANGRENE [None]
  - HEADACHE [None]
  - HYPERGLYCAEMIA [None]
  - HYPERTENSIVE HEART DISEASE [None]
  - INTERMITTENT CLAUDICATION [None]
  - LEUKOCYTOSIS [None]
  - LIP SWELLING [None]
  - MENTAL STATUS CHANGES [None]
  - OEDEMA PERIPHERAL [None]
  - RECTAL HAEMORRHAGE [None]
  - SWELLING FACE [None]
  - TACHYCARDIA [None]
